FAERS Safety Report 6016476-2 (Version None)
Quarter: 2008Q4

REPORT INFORMATION
  Report Type: 
  Country: None (occurrence: None)
  Receive Date: 20081222
  Receipt Date: 20080411
  Transmission Date: 20090506
  Serious: Yes (Other)
  Sender: FDA-Public Use
  Company Number: SE-ABBOTT-08P-150-0493430-00

PATIENT
  Sex: Female

DRUGS (1)
  1. SINALFA [Suspect]
     Indication: POLLAKIURIA

REACTIONS (3)
  - BLOOD PRESSURE ORTHOSTATIC [None]
  - CONCUSSION [None]
  - SYNCOPE [None]
